FAERS Safety Report 7274619 (Version 5)
Quarter: 2013Q4

REPORT INFORMATION
  Report Type: Spontaneous
  Country: GB (occurrence: GB)
  Receive Date: 20100209
  Receipt Date: 20131013
  Transmission Date: 20140711
  Serious: Yes (Hospitalization, Other)
  Sender: FDA-Public Use
  Company Number: PHHY2010GB01047

PATIENT
  Age: 11 Year
  Sex: Male
  Weight: 28.95 kg

DRUGS (5)
  1. EXJADE [Suspect]
     Indication: THALASSAEMIA BETA
     Dosage: 625 MG, QD
     Route: 048
     Dates: start: 200903, end: 200912
  2. EXJADE [Suspect]
     Dosage: 312.5 MG, QD
     Route: 048
  3. EXJADE [Suspect]
     Dosage: 750 MG, DAILY
     Route: 048
     Dates: end: 201305
  4. EXJADE [Suspect]
     Dosage: 500 MG, DAILY
     Route: 048
     Dates: start: 20130514, end: 20130520
  5. CALCICHEW [Concomitant]
     Dosage: 1 TABLET NOCTE

REACTIONS (16)
  - Gastroenteritis norovirus [Recovered/Resolved]
  - Hypophagia [Unknown]
  - Haematochezia [Unknown]
  - Malaise [Unknown]
  - Gastrointestinal sounds abnormal [Unknown]
  - Peptic ulcer [Recovered/Resolved]
  - Dyspepsia [Recovered/Resolved]
  - Melaena [Recovered/Resolved]
  - Gastritis [Unknown]
  - Haemoglobin decreased [Unknown]
  - Vomiting [Recovered/Resolved]
  - Nausea [Unknown]
  - Diarrhoea [Unknown]
  - Haemophilus infection [Unknown]
  - Splenomegaly [Unknown]
  - Blood phosphorus decreased [Unknown]
